FAERS Safety Report 7653053-1 (Version None)
Quarter: 2011Q3

REPORT INFORMATION
  Report Type: 
  Country: None (occurrence: None)
  Receive Date: 20110803
  Receipt Date: 20110728
  Transmission Date: 20111222
  Serious: Yes (Hospitalization)
  Sender: FDA-Public Use
  Company Number: IT-ROCHE-793271

PATIENT
  Sex: Male

DRUGS (3)
  1. FLUOROURACIL [Suspect]
     Dosage: FREQUENCY: CYCLE
     Route: 042
     Dates: start: 20110322, end: 20110322
  2. AVASTIN [Suspect]
     Dosage: FREQUENCY: CYCLE
     Route: 042
     Dates: start: 20110322, end: 20110322
  3. CAMPTOSAR [Suspect]
     Dosage: FREQUENCY: CYCLE
     Route: 042
     Dates: start: 20110322, end: 20110322

REACTIONS (2)
  - RENAL FAILURE ACUTE [None]
  - DIARRHOEA [None]
